FAERS Safety Report 6812935-0 (Version None)
Quarter: 2010Q3

REPORT INFORMATION
  Report Type: 
  Country: None (occurrence: None)
  Receive Date: 20100701
  Receipt Date: 20100621
  Transmission Date: 20110219
  Serious: Yes (Death, Other)
  Sender: FDA-Public Use
  Company Number: FR-BRISTOL-MYERS SQUIBB COMPANY-15157738

PATIENT
  Age: 50 Year
  Sex: Male

DRUGS (5)
  1. CYCLOPHOSPHAMIDE [Suspect]
     Indication: ADULT T-CELL LYMPHOMA/LEUKAEMIA
  2. ETOPOSIDE [Suspect]
     Indication: ADULT T-CELL LYMPHOMA/LEUKAEMIA
  3. VINCRISTINE SULFATE [Suspect]
     Indication: ADULT T-CELL LYMPHOMA/LEUKAEMIA
  4. ADRIAMYCIN PFS [Suspect]
     Indication: ADULT T-CELL LYMPHOMA/LEUKAEMIA
  5. DEXAMETHASONE [Suspect]
     Indication: ADULT T-CELL LYMPHOMA/LEUKAEMIA

REACTIONS (2)
  - SEPTIC SHOCK [None]
  - TUMOUR LYSIS SYNDROME [None]
